FAERS Safety Report 22220766 (Version 2)
Quarter: 2023Q2

REPORT INFORMATION
  Report Type: Spontaneous
  Country: US (occurrence: None)
  Receive Date: 20230418
  Receipt Date: 20230518
  Transmission Date: 20230722
  Serious: No
  Sender: FDA-Public Use
  Company Number: 2023A077203

PATIENT
  Sex: Female
  Weight: 60.8 kg

DRUGS (2)
  1. IMFINZI [Suspect]
     Active Substance: DURVALUMAB
     Indication: Non-small cell lung cancer
     Route: 042
     Dates: start: 202212
  2. FLEXERIL [Concomitant]
     Active Substance: CYCLOBENZAPRINE HYDROCHLORIDE
     Indication: Pain in extremity
     Dosage: UNKNOWN

REACTIONS (4)
  - Vision blurred [Unknown]
  - Cough [Unknown]
  - Pain in extremity [Unknown]
  - Thyroid disorder [Unknown]
